FAERS Safety Report 21535113 (Version 1)
Quarter: 2022Q4

REPORT INFORMATION
  Report Type: Spontaneous
  Country: US (occurrence: None)
  Receive Date: 20221031
  Receipt Date: 20221031
  Transmission Date: 20230112
  Serious: Yes (Disabling, Other)
  Sender: FDA-Public Use
  Company Number: None

PATIENT
  Age: 54 Year
  Sex: Female
  Weight: 89.7 kg

DRUGS (13)
  1. XARELTO [Suspect]
     Active Substance: RIVAROXABAN
     Indication: Anticoagulant therapy
     Dosage: FREQUENCY : TWICE A DAY;?
     Route: 048
  2. ASPIRIN [Concomitant]
     Active Substance: ASPIRIN
  3. VITAMINS [Concomitant]
     Active Substance: VITAMINS
  4. ATORVASTATIN [Concomitant]
     Active Substance: ATORVASTATIN
  5. AURYXIA [Concomitant]
     Active Substance: TETRAFERRIC TRICITRATE DECAHYDRATE
  6. BC (ASPIRIN\CAFFEINE) [Concomitant]
     Active Substance: ASPIRIN\CAFFEINE
  7. FISH OIL [Concomitant]
     Active Substance: FISH OIL
  8. VITAMIN D3 [Concomitant]
     Active Substance: CHOLECALCIFEROL
  9. CANNABIS SATIVA SEED OIL\HERBALS [Concomitant]
     Active Substance: CANNABIS SATIVA SEED OIL\HERBALS
  10. WALNUT OIL [Concomitant]
     Active Substance: WALNUT OIL
  11. IRON [Concomitant]
     Active Substance: IRON
  12. MAGNESIUM [Concomitant]
     Active Substance: MAGNESIUM
  13. TARAXACUM OFFICINALE ROOT [Concomitant]
     Active Substance: TARAXACUM OFFICINALE ROOT

REACTIONS (5)
  - Hypoaesthesia [None]
  - Muscular weakness [None]
  - Paraesthesia [None]
  - Therapy cessation [None]
  - Walking aid user [None]

NARRATIVE: CASE EVENT DATE: 20220905
